FAERS Safety Report 15539049 (Version 4)
Quarter: 2022Q3

REPORT INFORMATION
  Report Type: Spontaneous
  Country: FR (occurrence: FR)
  Receive Date: 20181022
  Receipt Date: 20220705
  Transmission Date: 20221026
  Serious: Yes (Hospitalization)
  Sender: FDA-Public Use
  Company Number: PHHY2018FR131218

PATIENT
  Sex: Male
  Weight: 70 kg

DRUGS (7)
  1. TACROLIMUS [Suspect]
     Active Substance: TACROLIMUS
     Indication: Immunosuppression
     Dosage: 15 MG, QD
     Route: 048
     Dates: start: 20170918
  2. TACROLIMUS [Suspect]
     Active Substance: TACROLIMUS
     Indication: Transplant rejection
     Dosage: 9 MG, QD
     Route: 048
     Dates: start: 20171105
  3. PREDNISONE [Concomitant]
     Active Substance: PREDNISONE
     Indication: Immunosuppressant drug therapy
     Dosage: 20 UNITS NOT REPORTED, ONCE DAILY
     Route: 065
     Dates: start: 20170904, end: 20170915
  4. PREDNISONE [Concomitant]
     Active Substance: PREDNISONE
     Dosage: 15 UNITS NOT REPORTED, ONCE DAILY
     Route: 065
     Dates: start: 20170916, end: 20170922
  5. PREDNISONE [Concomitant]
     Active Substance: PREDNISONE
     Dosage: 10 UNITS NOT REPORTED, ONCE DAILY
     Route: 065
     Dates: start: 20170923, end: 20170928
  6. PREDNISONE [Concomitant]
     Active Substance: PREDNISONE
     Dosage: 5 UNITS NOT REPORTED, ONCE DAILY
     Route: 065
     Dates: start: 20170929, end: 20171029
  7. CELLCEPT [Concomitant]
     Active Substance: MYCOPHENOLATE MOFETIL
     Indication: Immunosuppressant drug therapy
     Dosage: 1500 UNITS NOT REPORTED, ONCE DAILY
     Route: 065
     Dates: start: 20170904

REACTIONS (2)
  - Urinary tract infection [Recovered/Resolved]
  - Urinary tract infection [Recovered/Resolved]

NARRATIVE: CASE EVENT DATE: 20171006
